FAERS Safety Report 17591518 (Version 3)
Quarter: 2020Q2

REPORT INFORMATION
  Report Type: Report from Study
  Country: US (occurrence: US)
  Receive Date: 20200327
  Receipt Date: 20200507
  Transmission Date: 20200713
  Serious: Yes (Other)
  Sender: FDA-Public Use
  Company Number: US-GLAXOSMITHKLINE-2019-TSO00963-US

PATIENT
  Sex: Female

DRUGS (7)
  1. NIRAPARIB [Suspect]
     Active Substance: NIRAPARIB
     Dosage: 100 MG DAILY
  2. NIRAPARIB [Suspect]
     Active Substance: NIRAPARIB
     Dosage: 100 MG, 9 PM WITHOUT FOOD
     Route: 065
     Dates: start: 20190216, end: 20190825
  3. NIRAPARIB [Suspect]
     Active Substance: NIRAPARIB
     Dosage: 100 MG ON TUE, THU, SAT, SUN AND 200MG ON MON, WED, FRI - 9 PM WITHOUT FOOD
     Route: 065
     Dates: start: 20190826
  4. NIRAPARIB [Suspect]
     Active Substance: NIRAPARIB
     Indication: OVARIAN CANCER
     Dosage: 300 MG, QD
     Dates: start: 20190206
  5. NIRAPARIB [Suspect]
     Active Substance: NIRAPARIB
     Dosage: 200 MG, QD
     Dates: start: 20200312
  6. NIRAPARIB [Suspect]
     Active Substance: NIRAPARIB
     Dosage: 200 MG, QOD
  7. NIRAPARIB [Suspect]
     Active Substance: NIRAPARIB
     Dosage: 300 MG, QD

REACTIONS (24)
  - Malignant neoplasm progression [Unknown]
  - Limb discomfort [Recovered/Resolved]
  - Tremor [Unknown]
  - Malaise [Recovered/Resolved]
  - Fatigue [Not Recovered/Not Resolved]
  - Decreased appetite [Recovering/Resolving]
  - Insomnia [Unknown]
  - Dyspnoea exertional [Not Recovered/Not Resolved]
  - Inappropriate schedule of product administration [Unknown]
  - Feeling jittery [Not Recovered/Not Resolved]
  - Gait disturbance [Recovered/Resolved]
  - Dyspepsia [Not Recovered/Not Resolved]
  - Taste disorder [Not Recovered/Not Resolved]
  - Appetite disorder [Unknown]
  - Bronchitis [Recovered/Resolved]
  - Middle insomnia [Not Recovered/Not Resolved]
  - Asthenia [Not Recovered/Not Resolved]
  - Feeling abnormal [Unknown]
  - Drug intolerance [Unknown]
  - Nausea [Not Recovered/Not Resolved]
  - Constipation [Not Recovered/Not Resolved]
  - Dry mouth [Recovering/Resolving]
  - Back pain [Unknown]
  - Arthralgia [Unknown]
